FAERS Safety Report 8605909 (Version 4)
Quarter: 2012Q4

REPORT INFORMATION
  Report Type: 
  Country: JP (occurrence: JP)
  Receive Date: 20120608
  Receipt Date: 20120924
  Transmission Date: 20130627
  Serious: Yes (Other)
  Sender: FDA-Public Use
  Company Number: JP-JHP PHARMACEUTICALS, LLC-JHP201200289

PATIENT
  Age: 84 Year
  Sex: Male
  Weight: 54 kg

DRUGS (11)
  1. DANTRIUM [Suspect]
     Indication: MUSCLE SPASMS
     Dosage: 25 mg, daily
     Route: 048
     Dates: start: 20120503, end: 20120524
  2. LASIX [Concomitant]
     Indication: RENAL FAILURE CHRONIC
     Dosage: UNK
     Dates: start: 2010
  3. ZYLORIC [Concomitant]
     Indication: RENAL FAILURE CHRONIC
     Dosage: UNK
     Dates: start: 2010
  4. NEXIUM [Concomitant]
     Indication: GASTROOESOPHAGEAL REFLUX DISEASE
     Dosage: UNK
     Dates: start: 20111124
  5. ALFAROL [Concomitant]
     Indication: RENAL FAILURE CHRONIC
     Dosage: UNK
     Dates: start: 20110419
  6. ALLEGRA [Concomitant]
     Indication: PRURITUS
     Dosage: UNK
     Dates: start: 20110811
  7. REMITCH [Concomitant]
     Indication: PRURITUS
     Dosage: UNK
     Dates: start: 20120227
  8. FORSENID [Concomitant]
     Indication: CONSTIPATION
     Dosage: UNK
     Dates: start: 2010
  9. SORBITOL [Concomitant]
     Indication: CONSTIPATION
     Dosage: UNK
     Route: 048
     Dates: start: 20111003
  10. WARFARIN POTASSIUM [Concomitant]
     Indication: ATRIAL FIBRILLATION
     Dosage: UNK
     Dates: start: 2010
  11. NESP [Concomitant]
     Indication: NEPHROGENIC ANAEMIA
     Dosage: UNK
     Dates: start: 20110804

REACTIONS (2)
  - Blood creatinine increased [Not Recovered/Not Resolved]
  - Bradycardia [Recovered/Resolved]
